FAERS Safety Report 8494850-2 (Version None)
Quarter: 2012Q3

REPORT INFORMATION
  Report Type: 
  Country: None (occurrence: None)
  Receive Date: 20120709
  Receipt Date: 20120703
  Transmission Date: 20120928
  Serious: Yes (Other)
  Sender: FDA-Public Use
  Company Number: US-PFIZER INC-2012161128

PATIENT

DRUGS (2)
  1. LYRICA [Suspect]
  2. LIPITOR [Suspect]

REACTIONS (1)
  - RESPIRATORY DISORDER [None]
